FAERS Safety Report 15577965 (Version 1)
Quarter: 2018Q4

REPORT INFORMATION
  Report Type: Spontaneous
  Country: US (occurrence: US)
  Receive Date: 20181102
  Receipt Date: 20181102
  Transmission Date: 20190205
  Serious: Yes (Death, Other)
  Sender: FDA-Public Use
  Company Number: US-ASTELLAS-2018US046562

PATIENT
  Age: 65 Year
  Sex: Male

DRUGS (3)
  1. PREDNISONE. [Suspect]
     Active Substance: PREDNISONE
     Indication: LUNG TRANSPLANT
     Route: 065
  2. TACROLIMUS. [Suspect]
     Active Substance: TACROLIMUS
     Indication: LUNG TRANSPLANT
     Dosage: 0.5 MG, ONCE DAILY
     Route: 065
  3. AZATHIOPRINE. [Suspect]
     Active Substance: AZATHIOPRINE
     Indication: LUNG TRANSPLANT
     Route: 065

REACTIONS (8)
  - Systemic mycosis [Unknown]
  - Pneumonia [Fatal]
  - Pulmonary function test decreased [Unknown]
  - Lung transplant rejection [Recovered/Resolved]
  - Septic shock [Fatal]
  - Hypoxia [Unknown]
  - Product use in unapproved indication [Unknown]
  - Aspiration [Unknown]

NARRATIVE: CASE EVENT DATE: 2016
